FAERS Safety Report 9951399 (Version 1)
Quarter: 2014Q1

REPORT INFORMATION
  Report Type: Report from Study
  Country: US (occurrence: US)
  Receive Date: 20140304
  Receipt Date: 20140304
  Transmission Date: 20141002
  Serious: No
  Sender: FDA-Public Use
  Company Number: US-ABBVIE-13P-163-1069943-00

PATIENT
  Age: 61 Year
  Sex: Male

DRUGS (13)
  1. HUMIRA [Suspect]
     Indication: COLITIS ULCERATIVE
     Dates: start: 20121206, end: 20130121
  2. HUMIRA [Suspect]
     Dates: start: 20130124
  3. ULTRAM [Concomitant]
     Indication: FIBROMYALGIA
  4. DIOVAN [Concomitant]
     Indication: HYPERTENSION
     Dosage: 80 MG DAILY
  5. IRON [Concomitant]
     Indication: ANAEMIA
     Dosage: 50 MG DAILY
  6. FOLIC ACID [Concomitant]
     Indication: PRODUCT USED FOR UNKNOWN INDICATION
     Dosage: 400 MCG DAILY
  7. ACIPHEX [Concomitant]
     Indication: GASTROOESOPHAGEAL REFLUX DISEASE
     Dosage: 20 MG DAILY
  8. SIMVASTATIN [Concomitant]
     Indication: BLOOD CHOLESTEROL INCREASED
     Dosage: 10 MG DAILY
  9. MULTIVITAMIN [Concomitant]
     Indication: PRODUCT USED FOR UNKNOWN INDICATION
     Dosage: DAILY
  10. VITAMIN D [Concomitant]
     Indication: OSTEOPENIA
     Dosage: 1000 IU DAILY
  11. CALCIUM PLUS VITAMIN D [Concomitant]
     Indication: PRODUCT USED FOR UNKNOWN INDICATION
     Dosage: 500 MG DAILY
  12. FISH OIL [Concomitant]
     Indication: PRODUCT USED FOR UNKNOWN INDICATION
     Dosage: DAILY
  13. RECLAST [Concomitant]
     Indication: OSTEOPENIA
     Dosage: YEARLY

REACTIONS (2)
  - Haematochezia [Recovering/Resolving]
  - Frequent bowel movements [Recovering/Resolving]
